FAERS Safety Report 8363519-7 (Version None)
Quarter: 2012Q2

REPORT INFORMATION
  Report Type: 
  Country: None (occurrence: None)
  Receive Date: 20120516
  Receipt Date: 20120514
  Transmission Date: 20120825
  Serious: Yes (Hospitalization)
  Sender: FDA-Public Use
  Company Number: JP-BAYER-2012-045475

PATIENT
  Age: 74 Year
  Sex: Male

DRUGS (2)
  1. ALENDRONATE SODIUM [Suspect]
     Indication: SPINAL COMPRESSION FRACTURE
     Dosage: UNK
     Route: 048
  2. ASPIRIN [Suspect]
     Indication: VASCULAR PARKINSONISM
     Dosage: UNK
     Route: 048

REACTIONS (1)
  - NECROTISING OESOPHAGITIS [None]
